FAERS Safety Report 17749737 (Version 1)
Quarter: 2020Q2

REPORT INFORMATION
  Report Type: Report from Study
  Country: US (occurrence: US)
  Receive Date: 20200506
  Receipt Date: 20200506
  Transmission Date: 20200714
  Serious: No
  Sender: FDA-Public Use
  Company Number: NVSC2020US122942

PATIENT
  Age: 56 Year
  Sex: Female

DRUGS (1)
  1. COSENTYX [Suspect]
     Active Substance: SECUKINUMAB
     Indication: SPINAL OSTEOARTHRITIS
     Dosage: 300 MG, (2 PENS SUBCUTANEOUSLY, AT WEEK 4 THEN 300 MG EVERY 4 WEEKS THEREAFTER)
     Route: 058

REACTIONS (1)
  - Lip dry [Unknown]
